FAERS Safety Report 26001364 (Version 1)
Quarter: 2025Q4

REPORT INFORMATION
  Report Type: Spontaneous
  Country: GB (occurrence: GB)
  Receive Date: 20251105
  Receipt Date: 20251105
  Transmission Date: 20260119
  Serious: Yes (Disabling, Other)
  Sender: JOHNSON AND JOHNSON
  Company Number: None

PATIENT
  Age: 35 Year
  Sex: Female
  Weight: 86 kg

DRUGS (10)
  1. RISPERDAL [Suspect]
     Active Substance: RISPERIDONE
     Indication: Adverse drug reaction
     Dosage: 2MG. 1MG TWICE A DAY
     Route: 065
     Dates: start: 20230331, end: 20230531
  2. RISPERDAL [Suspect]
     Active Substance: RISPERIDONE
  3. RISPERDAL [Suspect]
     Active Substance: RISPERIDONE
  4. RISPERDAL [Suspect]
     Active Substance: RISPERIDONE
  5. RISPERDAL [Suspect]
     Active Substance: RISPERIDONE
  6. RISPERDAL [Suspect]
     Active Substance: RISPERIDONE
  7. CITALOPRAM [Suspect]
     Active Substance: CITALOPRAM
     Indication: Anxiety
     Dates: start: 2021, end: 20241228
  8. DIAZEPAM [Concomitant]
     Active Substance: DIAZEPAM
     Indication: Anxiety
  9. PROPRANOLOL [Concomitant]
     Active Substance: PROPRANOLOL HYDROCHLORIDE
     Indication: Adverse drug reaction
     Dates: start: 2016
  10. DESOGESTREL [Concomitant]
     Active Substance: DESOGESTREL
     Indication: Oral contraception

REACTIONS (7)
  - Sexual dysfunction [Not Recovered/Not Resolved]
  - Sensory loss [Unknown]
  - Withdrawal syndrome [Unknown]
  - Sexual dysfunction [Unknown]
  - Hypoaesthesia [Unknown]
  - Sexual life impairment [Unknown]
  - Asthenia [Unknown]

NARRATIVE: CASE EVENT DATE: 20230501
